FAERS Safety Report 20167419 (Version 3)
Quarter: 2022Q1

REPORT INFORMATION
  Report Type: Spontaneous
  Country: AU (occurrence: AU)
  Receive Date: 20211209
  Receipt Date: 20220131
  Transmission Date: 20220423
  Serious: Yes (Other)
  Sender: FDA-Public Use
  Company Number: AU-ALLERGAN-2141353US

PATIENT
  Sex: Female

DRUGS (3)
  1. OZURDEX [Suspect]
     Active Substance: DEXAMETHASONE
     Indication: Uveitis
     Dosage: 0.7 MG, SINGLE
     Route: 031
     Dates: start: 20191119, end: 20191119
  2. OZURDEX [Suspect]
     Active Substance: DEXAMETHASONE
     Indication: Serpiginous choroiditis
  3. ADALIMUMAB [Suspect]
     Active Substance: ADALIMUMAB
     Indication: Product used for unknown indication
     Dosage: 40 MG, Q2WEEKS
     Route: 058

REACTIONS (2)
  - Corneal decompensation [Recovered/Resolved with Sequelae]
  - Device dislocation [Unknown]

NARRATIVE: CASE EVENT DATE: 20191223
